FAERS Safety Report 5019489-2 (Version None)
Quarter: 2006Q2

REPORT INFORMATION
  Report Type: 
  Country: None (occurrence: None)
  Receive Date: 20060605
  Receipt Date: 20060605
  Transmission Date: 20061013
  Serious: Yes (Other)
  Sender: FDA-Public Use
  Company Number: None

PATIENT
  Sex: Male

DRUGS (2)
  1. DEMEROL [Suspect]
     Indication: PAIN
     Dosage: 12.5MG  ONE TIME ONLY  IV BOLUS
     Route: 040
     Dates: start: 20060522, end: 20060522
  2. MORPHINE [Suspect]
     Indication: PAIN
     Dosage: 4MG ONE TIME ONLY IV BOLUS
     Route: 040
     Dates: start: 20060522, end: 20060522

REACTIONS (1)
  - URTICARIA [None]
